FAERS Safety Report 16902956 (Version 1)
Quarter: 2019Q4

REPORT INFORMATION
  Report Type: Spontaneous
  Country: US (occurrence: US)
  Receive Date: 20191010
  Receipt Date: 20191010
  Transmission Date: 20200122
  Serious: Yes (Other)
  Sender: FDA-Public Use
  Company Number: US-STRIDES ARCOLAB LIMITED-2019SP009909

PATIENT
  Age: 58 Year
  Sex: Male

DRUGS (2)
  1. THYROGLOBULIN [Concomitant]
     Active Substance: THYROGLOBULIN
     Indication: RENAL TRANSPLANT
     Dosage: UNK
     Route: 065
  2. TACROLIMUS. [Suspect]
     Active Substance: TACROLIMUS
     Indication: RENAL TRANSPLANT
     Dosage: UNK
     Route: 065

REACTIONS (4)
  - Oesophageal achalasia [Recovered/Resolved]
  - Oesophageal motility disorder [Recovered/Resolved]
  - Dysphagia [Recovered/Resolved]
  - Gastrooesophageal sphincter insufficiency [Recovered/Resolved]
